FAERS Safety Report 25924076 (Version 2)
Quarter: 2025Q4

REPORT INFORMATION
  Report Type: Spontaneous
  Country: EU (occurrence: EU)
  Receive Date: 20251015
  Receipt Date: 20251017
  Transmission Date: 20260118
  Serious: Yes (Other)
  Sender: REGENERON
  Company Number: None

PATIENT
  Age: 75 Year
  Sex: Male

DRUGS (1)
  1. EYLEA [Suspect]
     Active Substance: AFLIBERCEPT
     Indication: Macular degeneration
     Dosage: ONE INTRAVITREAL INJECTION A TIME, SOLUTION FOR INJECTION, 40 MG/ML
     Route: 031
     Dates: start: 20250808

REACTIONS (1)
  - Toxic anterior segment syndrome [Not Recovered/Not Resolved]
